FAERS Safety Report 12375953 (Version 1)
Quarter: 2016Q2

REPORT INFORMATION
  Report Type: Spontaneous
  Country: US (occurrence: None)
  Receive Date: 20160516
  Receipt Date: 20160516
  Transmission Date: 20160815
  Serious: Yes (Disabling)
  Sender: FDA-Public Use
  Company Number: None

PATIENT
  Age: 62 Year
  Sex: Female
  Weight: 49.9 kg

DRUGS (1)
  1. MOXIFLOXACIN, 400 MG BAYER OR MERCK [Suspect]
     Active Substance: MOXIFLOXACIN
     Indication: OSTEOMYELITIS
     Route: 048
     Dates: start: 20151008, end: 20151115

REACTIONS (19)
  - Rash [None]
  - Skin exfoliation [None]
  - Dry eye [None]
  - Nail disorder [None]
  - Myalgia [None]
  - Dizziness [None]
  - Tinnitus [None]
  - Arthropathy [None]
  - Unevaluable event [None]
  - Deafness [None]
  - Eye pain [None]
  - Burning sensation [None]
  - Vertigo [None]
  - Vitreous floaters [None]
  - Arthralgia [None]
  - Photosensitivity reaction [None]
  - Tendon rupture [None]
  - Pain in jaw [None]
  - Tendon pain [None]

NARRATIVE: CASE EVENT DATE: 20151116
